FAERS Safety Report 7166221-2 (Version None)
Quarter: 2010Q4

REPORT INFORMATION
  Report Type: 
  Country: None (occurrence: None)
  Receive Date: 20101216
  Receipt Date: 20101206
  Transmission Date: 20110411
  Serious: Yes (Hospitalization)
  Sender: FDA-Public Use
  Company Number: US-CELGENEUS-163-21880-10111675

PATIENT
  Sex: Male

DRUGS (9)
  1. REVLIMID [Suspect]
     Indication: MULTIPLE MYELOMA
     Route: 048
     Dates: start: 20101015
  2. DECADRON [Suspect]
     Route: 065
  3. METFORMIN HCL [Concomitant]
     Route: 065
  4. MULTI-VITAMINS [Concomitant]
     Route: 065
  5. CO Q-10 [Concomitant]
     Route: 065
  6. FISH OIL [Concomitant]
     Route: 065
  7. THISILYN [Concomitant]
     Route: 065
  8. PRILOSEC [Concomitant]
     Route: 065
  9. TURMERIC [Concomitant]
     Route: 065

REACTIONS (2)
  - ATRIAL FIBRILLATION [None]
  - BLOOD GLUCAGON INCREASED [None]
